FAERS Safety Report 13817187 (Version 6)
Quarter: 2018Q2

REPORT INFORMATION
  Report Type: Report from Study
  Country: DO (occurrence: DO)
  Receive Date: 20170731
  Receipt Date: 20180413
  Transmission Date: 20180711
  Serious: Yes (Other)
  Sender: FDA-Public Use
  Company Number: PHHY2017DO101178

PATIENT
  Age: 52 Year
  Sex: Female

DRUGS (1)
  1. GILENYA [Suspect]
     Active Substance: FINGOLIMOD HYDROCHLORIDE
     Indication: PRODUCT USED FOR UNKNOWN INDICATION
     Dosage: 0.5 MG, UNK
     Route: 065

REACTIONS (28)
  - Muscle spasms [Unknown]
  - Limb discomfort [Unknown]
  - Illusion [Unknown]
  - Vomiting [Unknown]
  - Malaise [Unknown]
  - Psychiatric symptom [Unknown]
  - Diarrhoea [Unknown]
  - Myositis [Recovering/Resolving]
  - Autoimmune disorder [Unknown]
  - Multiple sclerosis [Unknown]
  - Ankylosing spondylitis [Unknown]
  - Swelling [Not Recovered/Not Resolved]
  - Inflammation [Unknown]
  - Fatigue [Unknown]
  - Cellulitis [Unknown]
  - Tendonitis [Recovering/Resolving]
  - Oedema peripheral [Unknown]
  - Arthralgia [Unknown]
  - Bursitis [Unknown]
  - Urinary tract infection [Unknown]
  - Immunosuppression [Unknown]
  - Bronchospasm [Unknown]
  - Arthritis [Unknown]
  - Gastroenteritis [Recovering/Resolving]
  - Infection [Unknown]
  - Pain [Unknown]
  - Feeling abnormal [Unknown]
  - Osteitis [Recovering/Resolving]
